FAERS Safety Report 24952300 (Version 1)
Quarter: 2025Q1

REPORT INFORMATION
  Report Type: Spontaneous
  Country: FR (occurrence: FR)
  Receive Date: 20250210
  Receipt Date: 20250210
  Transmission Date: 20250409
  Serious: Yes (Hospitalization)
  Sender: NOVARTIS
  Company Number: None

PATIENT
  Age: 62 Year
  Sex: Female

DRUGS (6)
  1. EVEROLIMUS [Suspect]
     Active Substance: EVEROLIMUS
     Indication: Heart transplant
     Dosage: 0.5 MG, QD (0.25 MG TWICE DAILY )
     Route: 048
     Dates: start: 20250124, end: 20250128
  2. TACROLIMUS [Suspect]
     Active Substance: TACROLIMUS
     Indication: Heart transplant
     Dosage: 11.5 MG, QD (6 MG LE MATIN, 5.5 MG LE SOIR)
     Route: 048
     Dates: start: 20241126
  3. VENLAFAXINE [Suspect]
     Active Substance: VENLAFAXINE HYDROCHLORIDE
     Indication: Depression
     Dosage: 75 MG, QD (75 MG/J)
     Route: 048
     Dates: start: 20241213, end: 20250128
  4. CELLCEPT [Suspect]
     Active Substance: MYCOPHENOLATE MOFETIL
     Indication: Heart transplant
     Dosage: 1000 MG, QD (500 MG 2 FOIS PAR JOUR)
     Route: 048
     Dates: start: 20241117, end: 20250123
  5. LANSOPRAZOLE [Suspect]
     Active Substance: LANSOPRAZOLE
     Indication: Prophylaxis against gastrointestinal ulcer
     Dosage: 60 MG, QD (30 MG 2 TIMES A DAY)
     Route: 048
     Dates: start: 20241117, end: 20250128
  6. MELATONIN [Suspect]
     Active Substance: MELATONIN
     Indication: Sleep disorder
     Dosage: 4 MG, QD
     Route: 048
     Dates: start: 20241126, end: 20250128

REACTIONS (1)
  - Leukopenia [Not Recovered/Not Resolved]

NARRATIVE: CASE EVENT DATE: 20250128
